FAERS Safety Report 9745476 (Version 1)
Quarter: 2013Q4

REPORT INFORMATION
  Report Type: Spontaneous
  Country: CA (occurrence: CA)
  Receive Date: 20131211
  Receipt Date: 20131211
  Transmission Date: 20140711
  Serious: Yes (Hospitalization)
  Sender: FDA-Public Use
  Company Number: CA-ASTRAZENECA-2013SE89473

PATIENT
  Age: 45 Year
  Sex: Female

DRUGS (5)
  1. SEROQUEL [Suspect]
     Route: 048
  2. ABILIFY [Suspect]
     Route: 065
  3. PAXIL [Suspect]
     Route: 065
  4. GABAPENTIN [Suspect]
     Route: 065
  5. ZOPICLONE [Suspect]
     Route: 065

REACTIONS (1)
  - Serotonin syndrome [Unknown]
